FAERS Safety Report 15346874 (Version 1)
Quarter: 2018Q3

REPORT INFORMATION
  Report Type: Spontaneous
  Country: US (occurrence: US)
  Receive Date: 20180827
  Receipt Date: 20180827
  Transmission Date: 20181010
  Serious: No
  Sender: FDA-Public Use
  Company Number: None

PATIENT
  Age: 76 Year
  Sex: Female
  Weight: 53.52 kg

DRUGS (10)
  1. ACETAMINOPHEN. [Concomitant]
     Active Substance: ACETAMINOPHEN
  2. MYRBETRIQ [Concomitant]
     Active Substance: MIRABEGRON
  3. VITAMIN B12 [Concomitant]
     Active Substance: CYANOCOBALAMIN
  4. BOTOX [Suspect]
     Active Substance: ONABOTULINUMTOXINA
     Indication: SKIN WRINKLING
     Dates: start: 20171218, end: 20180302
  5. FIORICET [Concomitant]
     Active Substance: ACETAMINOPHEN\BUTALBITAL\CAFFEINE
  6. VITAMIN D3 [Concomitant]
     Active Substance: CHOLECALCIFEROL
  7. IRON [Concomitant]
     Active Substance: IRON
  8. NORVASC [Concomitant]
     Active Substance: AMLODIPINE BESYLATE
  9. ALBUTEROL. [Concomitant]
     Active Substance: ALBUTEROL
  10. ZYRTEC [Concomitant]
     Active Substance: CETIRIZINE HYDROCHLORIDE

REACTIONS (11)
  - Abnormal sensation in eye [None]
  - Eyelid ptosis [None]
  - Vision blurred [None]
  - Muscular weakness [None]
  - Asthma [None]
  - Diplopia [None]
  - Eye disorder [None]
  - Headache [None]
  - Lacrimal disorder [None]
  - Dizziness [None]
  - Eyelid disorder [None]

NARRATIVE: CASE EVENT DATE: 20171218
